FAERS Safety Report 24222613 (Version 1)
Quarter: 2024Q3

REPORT INFORMATION
  Report Type: Spontaneous
  Country: US (occurrence: None)
  Receive Date: 20240816
  Receipt Date: 20240816
  Transmission Date: 20241017
  Serious: Yes (Hospitalization)
  Sender: Public
  Company Number: None

PATIENT
  Sex: Female

DRUGS (2)
  1. CAPECITABINE [Suspect]
     Active Substance: CAPECITABINE
     Indication: Appendix cancer
     Dosage: FREQUENCY : TWICE A DAY;?
     Route: 048
     Dates: start: 202404, end: 202406
  2. CAPECITABINE [Suspect]
     Active Substance: CAPECITABINE
     Indication: Appendix cancer
     Dates: start: 202403

REACTIONS (2)
  - Abdominal pain [None]
  - Diarrhoea [None]
